FAERS Safety Report 16004683 (Version 1)
Quarter: 2019Q1

REPORT INFORMATION
  Report Type: Spontaneous
  Country: US (occurrence: US)
  Receive Date: 20190226
  Receipt Date: 20190226
  Transmission Date: 20190418
  Serious: No
  Sender: FDA-Public Use
  Company Number: US-BAYER-2019-040128

PATIENT
  Age: 80 Year
  Sex: Female
  Weight: 140 kg

DRUGS (4)
  1. MIRALAX [Suspect]
     Active Substance: POLYETHYLENE GLYCOL 3350
     Indication: GASTROINTESTINAL DISORDER
     Dosage: A CAP FULL IN 8 OZ OF WATER
     Route: 048
     Dates: start: 20190217, end: 20190220
  2. VITAMIN D [Concomitant]
     Active Substance: CHOLECALCIFEROL
     Dosage: UNK
  3. ULTRA [Concomitant]
     Active Substance: SULFACETAMIDE SODIUM
  4. PROLEAK [Concomitant]

REACTIONS (5)
  - Drug effect incomplete [Unknown]
  - Feeling abnormal [Unknown]
  - Abdominal distension [Unknown]
  - Discomfort [Unknown]
  - Drug ineffective [Unknown]

NARRATIVE: CASE EVENT DATE: 20190217
